FAERS Safety Report 7442824-2 (Version None)
Quarter: 2011Q2

REPORT INFORMATION
  Report Type: 
  Country: None (occurrence: None)
  Receive Date: 20110428
  Receipt Date: 20101122
  Transmission Date: 20111010
  Serious: Yes (Hospitalization)
  Sender: FDA-Public Use
  Company Number: PHHO2010US16140

PATIENT
  Sex: Male

DRUGS (6)
  1. DIGOXIN [Suspect]
     Indication: CARDIAC FAILURE CONGESTIVE
     Dosage: UNK
     Dates: start: 20091113, end: 20101017
  2. BLINDED ENALAPRIL [Suspect]
     Dosage: NO TREATMENT
  3. BLINDED ALISKIREN [Suspect]
     Dosage: NO TREATMENT
  4. COMPARATOR ENALAPRIL [Suspect]
     Indication: CARDIAC FAILURE
     Dosage: 10 MG
     Route: 048
     Dates: start: 20100803, end: 20101017
  5. BLINDED NO TREATMENT RECEIVED [Suspect]
     Dosage: NO TREATMENT
  6. ALISKIREN [Suspect]
     Indication: CARDIAC FAILURE
     Dosage: 10 MG, QD
     Route: 048
     Dates: start: 20100803, end: 20101017

REACTIONS (7)
  - TOXICITY TO VARIOUS AGENTS [None]
  - RENAL FAILURE [None]
  - NAUSEA [None]
  - RENAL FAILURE ACUTE [None]
  - VOMITING [None]
  - DEHYDRATION [None]
  - DIARRHOEA [None]
